FAERS Safety Report 8920394 (Version 2)
Quarter: 2012Q4

REPORT INFORMATION
  Report Type: 
  Country: US (occurrence: US)
  Receive Date: 20121121
  Receipt Date: 20121212
  Transmission Date: 20130627
  Serious: No
  Sender: FDA-Public Use
  Company Number: US-PFIZER INC-2012291406

PATIENT
  Age: 50 Year
  Sex: Female
  Weight: 119 kg

DRUGS (6)
  1. GABAPENTIN [Suspect]
     Indication: FIBROMYALGIA
     Dosage: 300 mg, 3x/day
  2. GABAPENTIN [Suspect]
     Dosage: up to 800mg,3x/day
  3. GABAPENTIN [Suspect]
     Dosage: 1200 mg, 3x/day
  4. ADVIL PM [Suspect]
     Indication: INSOMNIA
     Dosage: 3 DF, daily (at night)
     Route: 048
  5. ALPRAZOLAM [Concomitant]
     Indication: ANXIETY
     Dosage: 2 mg, 2x/day
  6. TYLENOL [Concomitant]
     Indication: ARTHRITIS
     Dosage: 2 DF, 3x/day
     Route: 048

REACTIONS (3)
  - Drug ineffective [Unknown]
  - Insomnia [Unknown]
  - Intentional drug misuse [Unknown]
